FAERS Safety Report 8183055-0 (Version None)
Quarter: 2012Q1

REPORT INFORMATION
  Report Type: 
  Country: None (occurrence: None)
  Receive Date: 20120305
  Receipt Date: 20120220
  Transmission Date: 20120608
  Serious: Yes (Hospitalization)
  Sender: FDA-Public Use
  Company Number: IT-AMGEN-ITASP2012006848

PATIENT
  Age: 52 Year
  Sex: Female

DRUGS (1)
  1. GRANULOKINE [Suspect]
     Indication: PRODUCT USED FOR UNKNOWN INDICATION

REACTIONS (2)
  - HYPOVOLAEMIC SHOCK [None]
  - INTESTINAL ISCHAEMIA [None]
